FAERS Safety Report 7335540-9 (Version None)
Quarter: 2011Q1

REPORT INFORMATION
  Report Type: 
  Country: None (occurrence: None)
  Receive Date: 20110307
  Receipt Date: 20110304
  Transmission Date: 20110831
  Serious: Yes (Hospitalization)
  Sender: FDA-Public Use
  Company Number: RU-PFIZER INC-2011047838

PATIENT
  Age: 74 Year
  Sex: Male

DRUGS (3)
  1. CO-RENITEC [Concomitant]
     Indication: HYPERTENSION
     Dosage: 1 DF, 1X/DAY
     Route: 048
  2. NORVASC [Suspect]
     Indication: HYPERTENSION
     Dosage: 5 MG, 2X/DAY
     Route: 048
  3. ATENOLOL [Concomitant]
     Indication: HYPERTENSION
     Dosage: 12.5 MG, 2X/DAY
     Route: 048

REACTIONS (9)
  - MYOCLONUS [None]
  - DYSPNOEA [None]
  - CHOLESTASIS [None]
  - LYMPHADENOPATHY [None]
  - COORDINATION ABNORMAL [None]
  - CHOLECYSTITIS [None]
  - BLOOD PRESSURE INCREASED [None]
  - OSTEOARTHRITIS [None]
  - GOUT [None]
